FAERS Safety Report 5306612-5 (Version None)
Quarter: 2007Q2

REPORT INFORMATION
  Report Type: 
  Country: None (occurrence: None)
  Receive Date: 20070418
  Receipt Date: 20070403
  Transmission Date: 20071010
  Serious: Yes (Death, Life-Threatening, Hospitalization, Other)
  Sender: FDA-Public Use
  Company Number: 2007VX000786

PATIENT
  Age: 80 Year
  Sex: Male
  Weight: 63 kg

DRUGS (7)
  1. TASMAR [Suspect]
     Indication: PARKINSONISM
     Dosage: 100 MG;TID; PO
     Route: 048
     Dates: start: 20060101, end: 20070125
  2. ISOCOM [Concomitant]
  3. SIFROL [Concomitant]
  4. TRAZODONE HCL [Concomitant]
  5. SEROQUEL [Concomitant]
  6. PK-MERZ [Concomitant]
  7. CARBIDOPA [Concomitant]

REACTIONS (10)
  - ANAEMIA [None]
  - COMPARTMENT SYNDROME [None]
  - CONDITION AGGRAVATED [None]
  - DEEP VEIN THROMBOSIS [None]
  - HAEMORRHAGE [None]
  - HEPATIC FAILURE [None]
  - INTERNATIONAL NORMALISED RATIO INCREASED [None]
  - MULTI-ORGAN FAILURE [None]
  - MYOCARDIAL INFARCTION [None]
  - PARKINSON'S DISEASE [None]
